FAERS Safety Report 9829729 (Version 1)
Quarter: 2014Q1

REPORT INFORMATION
  Report Type: Spontaneous
  Country: GB (occurrence: GB)
  Receive Date: 20140120
  Receipt Date: 20140120
  Transmission Date: 20141002
  Serious: Yes (Other)
  Sender: FDA-Public Use
  Company Number: GB-ACCORD-021293

PATIENT
  Sex: 0

DRUGS (1)
  1. TRAMADOL/TRAMADOL HYDROCHLORIDE [Suspect]
     Indication: PRODUCT USED FOR UNKNOWN INDICATION

REACTIONS (5)
  - Rash [Unknown]
  - Haematochezia [Unknown]
  - Painful defaecation [Unknown]
  - Pruritus [Unknown]
  - Faecaloma [Unknown]
